FAERS Safety Report 17588232 (Version 1)
Quarter: 2020Q1

REPORT INFORMATION
  Report Type: Spontaneous
  Country: US (occurrence: US)
  Receive Date: 20200326
  Receipt Date: 20200326
  Transmission Date: 20200409
  Serious: Yes (Other)
  Sender: FDA-Public Use
  Company Number: US-NOVOPROD-716778

PATIENT
  Age: 53 Year
  Sex: Male

DRUGS (1)
  1. RYBELSUS [Suspect]
     Active Substance: SEMAGLUTIDE
     Indication: PRODUCT USED FOR UNKNOWN INDICATION
     Dosage: 3 MG, QD
     Route: 048
     Dates: start: 20200204, end: 20200207

REACTIONS (3)
  - Unresponsive to stimuli [Recovered/Resolved]
  - Hallucination, visual [Recovered/Resolved]
  - Autoscopy [Recovered/Resolved]

NARRATIVE: CASE EVENT DATE: 20200204
